FAERS Safety Report 19219293 (Version 1)
Quarter: 2021Q2

REPORT INFORMATION
  Report Type: Spontaneous
  Country: US (occurrence: US)
  Receive Date: 20210506
  Receipt Date: 20210506
  Transmission Date: 20210717
  Serious: No
  Sender: FDA-Public Use
  Company Number: US-ROCHE-2613501

PATIENT
  Age: 80 Year
  Sex: Female

DRUGS (4)
  1. ESBRIET [Suspect]
     Active Substance: PIRFENIDONE
     Route: 048
     Dates: start: 20200421
  2. ESBRIET [Suspect]
     Active Substance: PIRFENIDONE
     Route: 048
     Dates: start: 202004
  3. ESBRIET [Suspect]
     Active Substance: PIRFENIDONE
     Route: 048
     Dates: start: 20200731
  4. ESBRIET [Suspect]
     Active Substance: PIRFENIDONE
     Indication: IDIOPATHIC PULMONARY FIBROSIS
     Route: 048
     Dates: start: 20200411

REACTIONS (10)
  - Vomiting [Unknown]
  - Somnolence [Unknown]
  - Pruritus [Unknown]
  - Fatigue [Unknown]
  - Nausea [Unknown]
  - Alopecia [Unknown]
  - Decreased appetite [Unknown]
  - Ageusia [Unknown]
  - Abdominal pain [Unknown]
  - Dizziness [Unknown]

NARRATIVE: CASE EVENT DATE: 202005
